FAERS Safety Report 8258038-2 (Version None)
Quarter: 2012Q2

REPORT INFORMATION
  Report Type: 
  Country: None (occurrence: None)
  Receive Date: 20120404
  Receipt Date: 20120323
  Transmission Date: 20120825
  Serious: Yes (Hospitalization, Congenital Anomaly)
  Sender: FDA-Public Use
  Company Number: GB-JNJFOC-20120312946

PATIENT

DRUGS (2)
  1. NICOTINE [Suspect]
     Indication: FOETAL EXPOSURE DURING PREGNANCY
     Route: 064
  2. NICOTINE [Suspect]
     Route: 064

REACTIONS (12)
  - APGAR SCORE LOW [None]
  - BLOOD PH DECREASED [None]
  - INTRAVENTRICULAR HAEMORRHAGE [None]
  - NECROTISING COLITIS [None]
  - FOETAL EXPOSURE DURING PREGNANCY [None]
  - PREMATURE BABY [None]
  - LOW BIRTH WEIGHT BABY [None]
  - CONVULSION NEONATAL [None]
  - MECHANICAL VENTILATION [None]
  - CONGENITAL ANOMALY [None]
  - MATERNAL DRUGS AFFECTING FOETUS [None]
  - CAESAREAN SECTION [None]
